FAERS Safety Report 14312884 (Version 1)
Quarter: 2017Q4

REPORT INFORMATION
  Report Type: Spontaneous
  Country: AT (occurrence: AT)
  Receive Date: 20171221
  Receipt Date: 20171221
  Transmission Date: 20180321
  Serious: Yes (Life-Threatening, Hospitalization)
  Sender: FDA-Public Use
  Company Number: AT-CIPLA LTD.-2017AT24523

PATIENT

DRUGS (10)
  1. TOPIRAMATE. [Suspect]
     Active Substance: TOPIRAMATE
     Dosage: 50 MG, DOSAGE FORM: UNSPECIFIED
     Route: 048
     Dates: start: 20170130, end: 20170130
  2. VENLAFAXINE [Interacting]
     Active Substance: VENLAFAXINE HYDROCHLORIDE
     Dosage: 150 MG, UNK
     Route: 065
     Dates: start: 20170111, end: 20170130
  3. LYRICA [Interacting]
     Active Substance: PREGABALIN
     Indication: PRODUCT USED FOR UNKNOWN INDICATION
     Dosage: 450 MG, DOSAGE FORM: UNSPECIFIED
     Route: 065
     Dates: end: 20170129
  4. TOPIRAMATE. [Suspect]
     Active Substance: TOPIRAMATE
     Dosage: 75 MG, DOSAGE FORM: UNSPECIFIED
     Route: 048
     Dates: start: 20170120, end: 20170129
  5. VENLAFAXINE [Interacting]
     Active Substance: VENLAFAXINE HYDROCHLORIDE
     Indication: PRODUCT USED FOR UNKNOWN INDICATION
     Dosage: 225 MG, UNK
     Route: 065
     Dates: start: 201611, end: 20170110
  6. BRINTELLIX [Interacting]
     Active Substance: VORTIOXETINE HYDROBROMIDE
     Indication: PRODUCT USED FOR UNKNOWN INDICATION
     Dosage: 20 MG, DOSAGE FORM: UNSPECIFIED
     Route: 065
     Dates: end: 20170130
  7. ANAFRANIL [Interacting]
     Active Substance: CLOMIPRAMINE HYDROCHLORIDE
     Indication: PRODUCT USED FOR UNKNOWN INDICATION
     Dosage: 75 MG, DOSAGE FORM: UNSPECIFIED
     Route: 065
     Dates: end: 20170112
  8. TOPIRAMATE. [Suspect]
     Active Substance: TOPIRAMATE
     Indication: PRODUCT USED FOR UNKNOWN INDICATION
     Dosage: 100 MG, DOSAGE FORM: UNSPECIFIED
     Route: 048
     Dates: end: 20170119
  9. LYRICA [Interacting]
     Active Substance: PREGABALIN
     Dosage: 300 MG, DOSAGE FORM: UNSPECIFIED
     Route: 065
     Dates: start: 20170130, end: 20170131
  10. BRINTELLIX [Interacting]
     Active Substance: VORTIOXETINE HYDROBROMIDE
     Dosage: 10 MG, DOSAGE FORM: UNSPECIFIED
     Route: 065
     Dates: start: 20170131, end: 20170131

REACTIONS (3)
  - Drug interaction [Unknown]
  - Urinary tract infection [Recovered/Resolved]
  - Delirium [Recovered/Resolved]

NARRATIVE: CASE EVENT DATE: 20170105
